FAERS Safety Report 25361145 (Version 2)
Quarter: 2025Q2

REPORT INFORMATION
  Report Type: Spontaneous
  Country: FR (occurrence: FR)
  Receive Date: 20250527
  Receipt Date: 20250616
  Transmission Date: 20250716
  Serious: Yes (Other)
  Sender: Unknown Manufacturer
  Company Number: FR-Rhythm Pharmaceuticals, Inc.-2025RHM000105

PATIENT

DRUGS (10)
  1. IMCIVREE [Suspect]
     Active Substance: SETMELANOTIDE
     Indication: Laurence-Moon-Bardet-Biedl syndrome
     Dosage: 1 MILLIGRAM, QD
     Route: 058
     Dates: start: 20250204, end: 20250206
  2. IMCIVREE [Suspect]
     Active Substance: SETMELANOTIDE
     Dosage: .5 MILLIGRAM, QD
     Route: 058
     Dates: start: 20250206, end: 20250304
  3. IMCIVREE [Suspect]
     Active Substance: SETMELANOTIDE
     Dosage: 1 MILLIGRAM, QD
     Route: 058
     Dates: start: 20250304, end: 20250401
  4. IMCIVREE [Suspect]
     Active Substance: SETMELANOTIDE
     Dosage: 1.5 MILLIGRAM, QD
     Route: 058
     Dates: start: 20250401, end: 20250506
  5. RAMIPRIL [Concomitant]
     Active Substance: RAMIPRIL
     Indication: Hypertension
     Route: 065
  6. ACETAMINOPHEN\TRAMADOL [Concomitant]
     Active Substance: ACETAMINOPHEN\TRAMADOL
     Indication: Arthralgia
     Route: 065
  7. PREGABALIN [Concomitant]
     Active Substance: PREGABALIN
     Indication: Arthralgia
     Route: 065
  8. CHOLECALCIFEROL [Concomitant]
     Active Substance: CHOLECALCIFEROL
     Indication: Vitamin D deficiency
     Route: 065
     Dates: start: 202409
  9. FERROUS SULFATE [Concomitant]
     Active Substance: FERROUS SULFATE
     Indication: Iron deficiency
     Route: 065
     Dates: start: 202409
  10. TRAMADOL CHLORHYRATE [Concomitant]
     Indication: Product used for unknown indication
     Route: 065

REACTIONS (6)
  - Nausea [Recovered/Resolved]
  - Off label use [Not Recovered/Not Resolved]
  - Muscle fatigue [Not Recovered/Not Resolved]
  - Myalgia [Recovering/Resolving]
  - Asthenia [Recovering/Resolving]
  - Fatigue [Unknown]

NARRATIVE: CASE EVENT DATE: 20250204
